FAERS Safety Report 13510271 (Version 1)
Quarter: 2017Q2

REPORT INFORMATION
  Report Type: Spontaneous
  Country: US (occurrence: US)
  Receive Date: 20170503
  Receipt Date: 20170503
  Transmission Date: 20170830
  Serious: No
  Sender: FDA-Public Use
  Company Number: US-TARO-2016TAR00848

PATIENT
  Age: 17 Year
  Sex: Female

DRUGS (2)
  1. RETINOID TYPE CREAM [Concomitant]
  2. CLINDAMYCIN PHOSPHATE TOPICAL SOLUTION USP 1% [Suspect]
     Active Substance: CLINDAMYCIN PHOSPHATE
     Indication: ACNE
     Dosage: UNK UNK, 1X/DAY
     Dates: start: 20140221, end: 201610

REACTIONS (2)
  - Application site pain [Unknown]
  - Product quality issue [Not Recovered/Not Resolved]

NARRATIVE: CASE EVENT DATE: 201610
